FAERS Safety Report 7768210-3 (Version None)
Quarter: 2011Q3

REPORT INFORMATION
  Report Type: 
  Country: None (occurrence: None)
  Receive Date: 20110922
  Receipt Date: 20110922
  Transmission Date: 20111222
  Serious: Yes (Other)
  Sender: FDA-Public Use
  Company Number: None

PATIENT
  Age: 47 Year
  Sex: Female
  Weight: 68.038 kg

DRUGS (1)
  1. TUBERCULIN NOS [Suspect]
     Dosage: 0.1ML
     Route: 023
     Dates: start: 20110920, end: 20110920

REACTIONS (1)
  - ANAPHYLACTIC REACTION [None]
